FAERS Safety Report 5335042-5 (Version None)
Quarter: 2007Q2

REPORT INFORMATION
  Report Type: 
  Country: None (occurrence: None)
  Receive Date: 20070525
  Receipt Date: 20070524
  Transmission Date: 20071010
  Serious: Yes (Hospitalization)
  Sender: FDA-Public Use
  Company Number: A0652846A

PATIENT
  Age: 76 Year
  Sex: Male

DRUGS (8)
  1. AVANDIA [Suspect]
     Dosage: 4MG TWICE PER DAY
     Route: 048
     Dates: start: 20000101, end: 20070521
  2. VYTORIN [Concomitant]
  3. GLIPIZIDE [Concomitant]
  4. LASIX [Concomitant]
  5. DIOVAN [Concomitant]
  6. UNSPECIFIED MEDICATION [Concomitant]
  7. PROTONIX [Concomitant]
  8. UNSPECIFIED MEDICATION [Concomitant]

REACTIONS (4)
  - ANAEMIA [None]
  - ATRIOVENTRICULAR BLOCK [None]
  - DYSPNOEA [None]
  - STENT PLACEMENT [None]
